FAERS Safety Report 5796866-3 (Version None)
Quarter: 2008Q3

REPORT INFORMATION
  Report Type: 
  Country: None (occurrence: None)
  Receive Date: 20080701
  Receipt Date: 20080627
  Transmission Date: 20090109
  Serious: Yes (Other)
  Sender: FDA-Public Use
  Company Number: AU-AVENTIS-200816132GDDC

PATIENT
  Age: 51 Year
  Sex: Female

DRUGS (4)
  1. ARAVA [Suspect]
     Indication: RHEUMATOID ARTHRITIS
     Dosage: DOSE: UNK
  2. CLEXANE [Concomitant]
     Dosage: DOSE: UNK
  3. ANTIBIOTICS [Concomitant]
     Dosage: DOSE: UNK
  4. ANALGESICS [Concomitant]
     Dosage: DOSE: UNK

REACTIONS (1)
  - THROMBOTIC MICROANGIOPATHY [None]
